FAERS Safety Report 8575525-8 (Version None)
Quarter: 2012Q3

REPORT INFORMATION
  Report Type: 
  Country: None (occurrence: None)
  Receive Date: 20120807
  Receipt Date: 20120801
  Transmission Date: 20120928
  Serious: Yes (Hospitalization, Disabling)
  Sender: FDA-Public Use
  Company Number: PHHY2012BR031438

PATIENT
  Sex: Female
  Weight: 77 kg

DRUGS (4)
  1. ENALAPRIL MALEATE [Concomitant]
     Indication: HYPERTENSION
     Dosage: 4 DF, QD
  2. FORMOTEROL FUMARATE [Suspect]
     Indication: EMPHYSEMA
     Dosage: 2 DF, DAILY
  3. TANDRILAX [Concomitant]
     Indication: INTERVERTEBRAL DISC PROTRUSION
  4. AMARYL [Concomitant]
     Indication: DIABETES MELLITUS
     Dosage: 2 DF, QD
     Route: 048

REACTIONS (6)
  - GENERAL PHYSICAL HEALTH DETERIORATION [None]
  - FATIGUE [None]
  - DYSPNOEA [None]
  - ABASIA [None]
  - DRUG INEFFECTIVE [None]
  - EMPHYSEMA [None]
